FAERS Safety Report 23348411 (Version 1)
Quarter: 2023Q4

REPORT INFORMATION
  Report Type: Spontaneous
  Country: US (occurrence: US)
  Receive Date: 20231228
  Receipt Date: 20231228
  Transmission Date: 20240110
  Serious: No
  Sender: FDA-Public Use
  Company Number: US-DRL-USA-LIT/USA/23/0032335

PATIENT
  Age: 53 Year
  Sex: Female

DRUGS (3)
  1. APREMILAST [Suspect]
     Active Substance: APREMILAST
     Indication: Benign familial pemphigus
     Route: 048
  2. TACROLIMUS [Suspect]
     Active Substance: TACROLIMUS
     Indication: Benign familial pemphigus
  3. ERYTHROMYCIN [Suspect]
     Active Substance: ERYTHROMYCIN
     Indication: Benign familial pemphigus

REACTIONS (3)
  - Gastrointestinal disorder [Unknown]
  - Drug intolerance [Unknown]
  - Drug ineffective [Unknown]
